FAERS Safety Report 18342752 (Version 1)
Quarter: 2020Q4

REPORT INFORMATION
  Report Type: Spontaneous
  Country: US (occurrence: US)
  Receive Date: 20201001
  Receipt Date: 20201001
  Transmission Date: 20210113
  Serious: No
  Sender: FDA-Public Use
  Company Number: None

PATIENT
  Age: 38 Day
  Sex: Female

DRUGS (2)
  1. TALTZ [Suspect]
     Active Substance: IXEKIZUMAB
     Indication: PSORIASIS
     Dosage: FREQUENCY: WEEK 12 THEN EVERY 4 WEEKS AS DIRECTED
     Route: 058
     Dates: start: 202006
  2. TALTZ [Suspect]
     Active Substance: IXEKIZUMAB
     Indication: PSORIATIC ARTHROPATHY
     Dosage: FREQUENCY: WEEK 12 THEN EVERY 4 WEEKS AS DIRECTED
     Route: 058
     Dates: start: 202006

REACTIONS (1)
  - Rhinitis [None]
